FAERS Safety Report 11242505 (Version 1)
Quarter: 2015Q3

REPORT INFORMATION
  Report Type: Spontaneous
  Country: KR (occurrence: None)
  Receive Date: 20150702
  Receipt Date: 20150702
  Transmission Date: 20151125
  Serious: Yes (Death, Hospitalization)
  Sender: FDA-Public Use
  Company Number: 2015PL000129

PATIENT
  Age: 84 Year
  Sex: Male

DRUGS (3)
  1. ALLOPURINOL (ALLOPURINOL) TABLET [Suspect]
     Active Substance: ALLOPURINOL
     Indication: NEPHROPATHY
  2. ALLOPURINOL (ALLOPURINOL) TABLET [Suspect]
     Active Substance: ALLOPURINOL
     Indication: CHRONIC KIDNEY DISEASE
  3. TORASEMIDE [Concomitant]
     Active Substance: TORSEMIDE

REACTIONS (6)
  - Cardiac disorder [None]
  - Cardiac arrest [None]
  - Sinus tachycardia [None]
  - Sudden cardiac death [None]
  - Drug reaction with eosinophilia and systemic symptoms [None]
  - Hepatic cyst [None]
